FAERS Safety Report 7093649-1 (Version None)
Quarter: 2010Q4

REPORT INFORMATION
  Report Type: 
  Country: None (occurrence: None)
  Receive Date: 20101102
  Receipt Date: 20101025
  Transmission Date: 20110411
  Serious: Yes (Other)
  Sender: FDA-Public Use
  Company Number: 2010SP051179

PATIENT
  Age: 27 Year
  Sex: Female
  Weight: 85.7298 kg

DRUGS (3)
  1. IMPLANON [Suspect]
     Indication: CONTRACEPTION
     Dosage: SBDE
     Route: 059
     Dates: start: 20100723
  2. PRIOLSEC [Concomitant]
  3. PRENATAL VITAMINS [Concomitant]

REACTIONS (4)
  - ABDOMINAL PAIN UPPER [None]
  - ALANINE AMINOTRANSFERASE INCREASED [None]
  - NAUSEA [None]
  - VOMITING [None]
